FAERS Safety Report 6068863-4 (Version None)
Quarter: 2009Q1

REPORT INFORMATION
  Report Type: 
  Country: None (occurrence: None)
  Receive Date: 20090203
  Receipt Date: 20090114
  Transmission Date: 20090719
  Serious: Yes (Hospitalization)
  Sender: FDA-Public Use
  Company Number: 145819

PATIENT
  Age: 58 Year
  Sex: Male
  Weight: 51.4 kg

DRUGS (3)
  1. PACLITAXEL [Suspect]
     Indication: NON-SMALL CELL LUNG CANCER
     Dosage: 308 MG, EVERY 3 WEEKS, INTRAVENOUS
     Route: 042
     Dates: start: 20081204
  2. CARBOPLATIN [Suspect]
     Indication: NON-SMALL CELL LUNG CANCER
     Dosage: 568 MG, EVERY 3 WEEKS, INTRAVENOUS
     Route: 042
     Dates: start: 20081204
  3. PARACETAMOL [Concomitant]

REACTIONS (1)
  - BLOOD CREATININE INCREASED [None]
